FAERS Safety Report 7931421-8 (Version None)
Quarter: 2011Q4

REPORT INFORMATION
  Report Type: 
  Country: None (occurrence: None)
  Receive Date: 20111121
  Receipt Date: 20111114
  Transmission Date: 20120403
  Serious: Yes (Life-Threatening)
  Sender: FDA-Public Use
  Company Number: JP-CELGENEUS-087-21660-11112550

PATIENT
  Sex: Female
  Weight: 50 kg

DRUGS (8)
  1. HERCEPTIN [Suspect]
     Route: 041
     Dates: start: 20110127
  2. FEROTYM [Concomitant]
     Route: 048
     Dates: start: 20101005
  3. HERCEPTIN [Suspect]
     Indication: BREAST CANCER METASTATIC
     Dosage: 120MG-240MG
     Route: 041
     Dates: start: 20101005, end: 20110106
  4. ABRAXANE [Suspect]
     Dosage: 300 MILLIGRAM
     Route: 041
     Dates: start: 20110106, end: 20110106
  5. LEUCON [Concomitant]
     Route: 048
     Dates: start: 20101005
  6. ABRAXANE [Suspect]
     Route: 041
     Dates: start: 20110127
  7. ABRAXANE [Suspect]
     Indication: BREAST CANCER METASTATIC
     Dosage: 300 MILLIGRAM
     Route: 041
     Dates: start: 20101005, end: 20101209
  8. METHYCOOL [Concomitant]
     Route: 048
     Dates: start: 20101005

REACTIONS (1)
  - HAEMOGLOBIN DECREASED [None]
